FAERS Safety Report 17491252 (Version 2)
Quarter: 2020Q3

REPORT INFORMATION
  Report Type: Report from Study
  Country: US (occurrence: US)
  Receive Date: 20200303
  Receipt Date: 20200909
  Transmission Date: 20201102
  Serious: No
  Sender: FDA-Public Use
  Company Number: US-SA-2020SA055007

PATIENT

DRUGS (2)
  1. ESTARYLLA [Concomitant]
     Active Substance: ETHINYL ESTRADIOL\NORGESTIMATE
  2. DUPILUMAB [Suspect]
     Active Substance: DUPILUMAB
     Indication: NASAL POLYPS
     Dosage: 300 MG, QOW
     Route: 058
     Dates: start: 20191206, end: 202003

REACTIONS (4)
  - Eye irritation [Recovered/Resolved]
  - Off label use [Unknown]
  - Visual impairment [Recovered/Resolved]
  - Eye pain [Recovered/Resolved]
